FAERS Safety Report 11839938 (Version 1)
Quarter: 2015Q4

REPORT INFORMATION
  Report Type: Spontaneous
  Country: US (occurrence: None)
  Receive Date: 20151215
  Receipt Date: 20151215
  Transmission Date: 20160305
  Serious: No
  Sender: FDA-Public Use
  Company Number: None

PATIENT
  Age: 15 Year
  Sex: Female
  Weight: 45.36 kg

DRUGS (1)
  1. METHYLPHENIDATE. [Suspect]
     Active Substance: METHYLPHENIDATE
     Indication: ATTENTION DEFICIT/HYPERACTIVITY DISORDER
     Dosage: 27
     Route: 048

REACTIONS (6)
  - Memory impairment [None]
  - Educational problem [None]
  - Mental disorder [None]
  - Product substitution issue [None]
  - Speech disorder [None]
  - Mental impairment [None]

NARRATIVE: CASE EVENT DATE: 20151213
